FAERS Safety Report 7138228-2 (Version None)
Quarter: 2010Q4

REPORT INFORMATION
  Report Type: 
  Country: None (occurrence: None)
  Receive Date: 20101118
  Receipt Date: 20101108
  Transmission Date: 20110411
  Serious: Yes (Hospitalization, Other)
  Sender: FDA-Public Use
  Company Number: 020531

PATIENT
  Sex: Female

DRUGS (3)
  1. KEPPRA [Suspect]
     Indication: CONVULSION
     Dosage: 1000 MG QD
     Dates: start: 20100824
  2. BACTRIM [Concomitant]
  3. ONDANSETRON [Concomitant]

REACTIONS (1)
  - NO ADVERSE EVENT [None]
